FAERS Safety Report 13536182 (Version 2)
Quarter: 2017Q2

REPORT INFORMATION
  Report Type: Report from Study
  Country: US (occurrence: US)
  Receive Date: 20170511
  Receipt Date: 20170622
  Transmission Date: 20170830
  Serious: Yes (Hospitalization)
  Sender: FDA-Public Use
  Company Number: US-VIFOR (INTERNATIONAL) INC.-VIT-2017-03179

PATIENT
  Age: 84 Year
  Sex: Female
  Weight: 96.25 kg

DRUGS (1)
  1. VELTASSA [Suspect]
     Active Substance: PATIROMER
     Indication: BLOOD POTASSIUM INCREASED
     Route: 048
     Dates: start: 20170308, end: 201706

REACTIONS (6)
  - Product taste abnormal [Unknown]
  - Diarrhoea [Recovered/Resolved]
  - Blood potassium increased [Unknown]
  - Decreased appetite [Not Recovered/Not Resolved]
  - Cardiac failure congestive [Recovered/Resolved]
  - Malaise [Recovered/Resolved]

NARRATIVE: CASE EVENT DATE: 201703
